FAERS Safety Report 22670536 (Version 2)
Quarter: 2024Q1

REPORT INFORMATION
  Report Type: Spontaneous
  Country: PT (occurrence: PT)
  Receive Date: 20230705
  Receipt Date: 20240107
  Transmission Date: 20240410
  Serious: Yes (Other)
  Sender: FDA-Public Use
  Company Number: PT-CELLTRION INC.-2023PT013414

PATIENT

DRUGS (4)
  1. BEVACIZUMAB [Suspect]
     Active Substance: BEVACIZUMAB
     Indication: Hepatocellular carcinoma
     Dosage: 30/SEP/2021 TO /DEC/2022
     Route: 065
     Dates: start: 20210316, end: 20210820
  2. LENVATINIB [Suspect]
     Active Substance: LENVATINIB
     Indication: Hepatocellular carcinoma
     Route: 065
  3. ATEZOLIZUMAB [Suspect]
     Active Substance: ATEZOLIZUMAB
     Indication: Hepatocellular carcinoma
     Dosage: 30/SEP/2021 TO /DEC/2022
     Route: 042
     Dates: start: 20210316, end: 20210830
  4. SORAFENIB [Suspect]
     Active Substance: SORAFENIB
     Indication: Hepatocellular carcinoma
     Route: 065

REACTIONS (3)
  - Neoplasm [Unknown]
  - Hepatic lesion [Unknown]
  - Intentional product use issue [Unknown]
